FAERS Safety Report 18472934 (Version 4)
Quarter: 2021Q1

REPORT INFORMATION
  Report Type: Report from Study
  Country: CA (occurrence: CA)
  Receive Date: 20201106
  Receipt Date: 20210325
  Transmission Date: 20210419
  Serious: Yes (Other)
  Sender: FDA-Public Use
  Company Number: PHHY2019CA071957

PATIENT
  Age: 40 Year
  Sex: Male

DRUGS (7)
  1. ILARIS [Suspect]
     Active Substance: CANAKINUMAB
     Dosage: 150 MG, Q4W
     Route: 065
  2. COLCHICINE. [Concomitant]
     Active Substance: COLCHICINE
     Indication: PRODUCT USED FOR UNKNOWN INDICATION
     Dosage: UNK
     Route: 065
     Dates: start: 1984
  3. DILAUDID [Concomitant]
     Active Substance: HYDROMORPHONE HYDROCHLORIDE
     Indication: PRODUCT USED FOR UNKNOWN INDICATION
     Dosage: UNK
     Route: 065
  4. ILARIS [Suspect]
     Active Substance: CANAKINUMAB
     Indication: FAMILIAL MEDITERRANEAN FEVER
     Dosage: 50 MG (50 MG 2 MOIS/ MONTHS)
     Route: 058
     Dates: start: 20190322
  5. ILARIS [Suspect]
     Active Substance: CANAKINUMAB
     Dosage: 25 MG, Q2MO (2 MOIS)
     Route: 058
     Dates: start: 20190322
  6. ILARIS [Suspect]
     Active Substance: CANAKINUMAB
     Dosage: 50 MG (50 MG 2 MOIS)
     Route: 058
     Dates: start: 20191028, end: 20201030
  7. PLAQUENIL [Concomitant]
     Active Substance: HYDROXYCHLOROQUINE SULFATE
     Indication: PRODUCT USED FOR UNKNOWN INDICATION
     Dosage: UNK
     Route: 065

REACTIONS (9)
  - Pyrexia [Unknown]
  - Body temperature decreased [Unknown]
  - Disturbance in attention [Recovering/Resolving]
  - Depression suicidal [Unknown]
  - Malaise [Unknown]
  - Dizziness [Recovered/Resolved]
  - Seizure [Unknown]
  - Nausea [Recovered/Resolved]
  - Arthralgia [Unknown]

NARRATIVE: CASE EVENT DATE: 20190322
